FAERS Safety Report 4732328-X (Version None)
Quarter: 2005Q3

REPORT INFORMATION
  Report Type: 
  Country: None (occurrence: None)
  Receive Date: 20050726
  Receipt Date: 20041206
  Transmission Date: 20060218
  Serious: Yes (Hospitalization)
  Sender: FDA-Public Use
  Company Number: 05USA0065

PATIENT
  Age: 58 Year
  Sex: Female

DRUGS (5)
  1. AGGRASTAT [Suspect]
     Indication: CORONARY ANGIOPLASTY
     Dates: start: 20041204, end: 20041204
  2. CLOPIDOGREL BISULFATE [Concomitant]
  3. ASPIRIN [Concomitant]
  4. HEPARIN [Concomitant]
  5. METOPROLOL TARTRATE [Concomitant]

REACTIONS (1)
  - THROMBOCYTOPENIA [None]
